FAERS Safety Report 25839621 (Version 1)
Quarter: 2025Q3

REPORT INFORMATION
  Report Type: Spontaneous
  Country: US (occurrence: US)
  Receive Date: 20250924
  Receipt Date: 20250924
  Transmission Date: 20251020
  Serious: No
  Sender: ALCON
  Company Number: US-ALCON LABORATORIES-ALC2024US003873

PATIENT
  Sex: Male

DRUGS (1)
  1. NAPHCON A [Suspect]
     Active Substance: NAPHAZOLINE HYDROCHLORIDE\PHENIRAMINE MALEATE
     Indication: Product used for unknown indication
     Route: 047
     Dates: start: 20240819

REACTIONS (3)
  - Expired product administered [Unknown]
  - Eye irritation [Recovered/Resolved]
  - Ocular hyperaemia [Unknown]

NARRATIVE: CASE EVENT DATE: 20240819
